FAERS Safety Report 9201309 (Version 2)
Quarter: 2013Q2

REPORT INFORMATION
  Report Type: Spontaneous
  Country: US (occurrence: None)
  Receive Date: 20130325
  Receipt Date: 20130415
  Transmission Date: 20140414
  Serious: Yes (Hospitalization)
  Sender: FDA-Public Use
  Company Number: 2013PROUSA02637

PATIENT
  Age: 85 Year
  Sex: Male

DRUGS (21)
  1. PROVENGE (SIPULEUCEL-T) SUSPENSION, 250ML [Suspect]
     Indication: PROSTATE CANCER METASTATIC
     Route: 042
     Dates: start: 20130215, end: 20130215
  2. TRAMADOL (TRAMADOL HYDROCHLORIDE) [Suspect]
  3. LUPRON (LEUPRORELIN ACETATE) [Concomitant]
  4. TYLENOL (PARACETAMOL) [Concomitant]
  5. MILK OF MAGNESIA [Concomitant]
  6. DULCOLAX (BISACODYL) [Concomitant]
  7. VITAMIN D (COLECALCIFEROL) [Concomitant]
  8. CARBIDOPA AND LEVODOPA (CARBIDOPA, LEVODOPA) [Concomitant]
  9. ASPIRIN (ACETYLSALICYLIC ACID) [Suspect]
  10. MEGACE (MEGESTROL ACETATE) [Concomitant]
  11. DIGOXIN (DIGOXIN) [Concomitant]
  12. LEVAQUIN (LEVOFLOXACIN) [Concomitant]
  13. FLORASTOR (SACCHAROMYCES BOULARDII) [Concomitant]
  14. FERROUS SULFATE (FERROUS SULFATE) [Concomitant]
  15. THERAGRAN (ASCORBIC ACID, CALCIUM PANTOTHENATE, COLECALCIFEROL, CYANOCOBALAMIN, NICOTINAMIDE, PYRIDOXINE HYDROCHLORIDE, RETINOL, RIBOFLAVIN, THIAMINE HYDROCHLORIDE, TOCOPHERYL ACETATE) [Concomitant]
  16. VITAMIN C [Concomitant]
  17. ZINC SULFATE (ZINC SULFATE) [Concomitant]
  18. MIDODRINE (MIDODRINE HYDROCHLORIDE) [Concomitant]
  19. DUODERM (CARMELLOSE, PECTIN) [Concomitant]
  20. BENZOIN (BENZOIN) [Concomitant]
  21. DONEPEZIL (DONEPEZIL) [Concomitant]

REACTIONS (5)
  - Medical device complication [None]
  - Unresponsive to stimuli [None]
  - Pneumonia [None]
  - Blood pressure decreased [None]
  - Irritability [None]
